FAERS Safety Report 14899008 (Version 1)
Quarter: 2018Q2

REPORT INFORMATION
  Report Type: Spontaneous
  Country: FR (occurrence: FR)
  Receive Date: 20180516
  Receipt Date: 20180516
  Transmission Date: 20180711
  Serious: Yes (Other)
  Sender: FDA-Public Use
  Company Number: FR-MERCK KGAA-2047843

PATIENT
  Age: 59 Year
  Sex: Female

DRUGS (1)
  1. NOVOTHYROX [Suspect]
     Active Substance: LEVOTHYROXINE SODIUM
     Indication: PRODUCT USED FOR UNKNOWN INDICATION

REACTIONS (17)
  - Pain [None]
  - Asthenia [None]
  - Insomnia [None]
  - Blood thyroid stimulating hormone increased [None]
  - Bedridden [None]
  - Gastrointestinal carcinoma [None]
  - Abdominal pain [None]
  - Hypertension [None]
  - Fatigue [None]
  - Dizziness [None]
  - Irritability [None]
  - Muscle spasms [None]
  - Depression [None]
  - Migraine [None]
  - Loss of libido [None]
  - Social avoidant behaviour [None]
  - Diarrhoea [None]

NARRATIVE: CASE EVENT DATE: 201707
